FAERS Safety Report 6978270-5 (Version None)
Quarter: 2010Q3

REPORT INFORMATION
  Report Type: 
  Country: None (occurrence: None)
  Receive Date: 20100913
  Receipt Date: 20100902
  Transmission Date: 20110219
  Serious: Yes (Hospitalization)
  Sender: FDA-Public Use
  Company Number: CZ-BAYER-201036033GPV

PATIENT
  Age: 67 Year
  Sex: Female

DRUGS (1)
  1. SORAFENIB [Suspect]
     Indication: RENAL CANCER
     Dates: end: 20100524

REACTIONS (4)
  - C-REACTIVE PROTEIN INCREASED [None]
  - HYPERTENSION [None]
  - PALMAR-PLANTAR ERYTHRODYSAESTHESIA SYNDROME [None]
  - UROSEPSIS [None]
